FAERS Safety Report 8329342-4 (Version None)
Quarter: 2012Q2

REPORT INFORMATION
  Report Type: 
  Country: None (occurrence: None)
  Receive Date: 20120502
  Receipt Date: 20110516
  Transmission Date: 20120825
  Serious: No
  Sender: FDA-Public Use
  Company Number: US-ASTRAZENECA-2011SE30679

PATIENT

DRUGS (1)
  1. FASLODEX [Suspect]
     Dosage: 250MG/5ML
     Route: 030

REACTIONS (2)
  - DEVICE BREAKAGE [None]
  - INJECTION SITE PAIN [None]
